FAERS Safety Report 16761133 (Version 1)
Quarter: 2019Q3

REPORT INFORMATION
  Report Type: Spontaneous
  Country: US (occurrence: US)
  Receive Date: 20190830
  Receipt Date: 20190830
  Transmission Date: 20191005
  Serious: Yes (Other)
  Sender: FDA-Public Use
  Company Number: US-ANIPHARMA-2019-US-000828

PATIENT
  Age: 68 Year
  Sex: Female
  Weight: 45.36 kg

DRUGS (7)
  1. APIRIN [Concomitant]
  2. VITAMIN C [Concomitant]
     Active Substance: ASCORBIC ACID
  3. ARIMIDEX [Suspect]
     Active Substance: ANASTROZOLE
     Indication: BREAST CANCER
     Dosage: 10 MG, ONE PER DAY
     Route: 048
     Dates: start: 201209, end: 201411
  4. VAGIFEM [Concomitant]
     Active Substance: ESTRADIOL
  5. TURMERIC [Concomitant]
     Active Substance: HERBALS\TURMERIC
  6. SEA SALT [Concomitant]
     Active Substance: SEA SALT
  7. VITAMIN D3 [Concomitant]
     Active Substance: CHOLECALCIFEROL

REACTIONS (3)
  - Drug ineffective [Unknown]
  - Intentional product misuse [Unknown]
  - Recurrent cancer [Unknown]

NARRATIVE: CASE EVENT DATE: 201411
